FAERS Safety Report 9827108 (Version 1)
Quarter: 2014Q1

REPORT INFORMATION
  Report Type: Spontaneous
  Country: US (occurrence: US)
  Receive Date: 20140117
  Receipt Date: 20140117
  Transmission Date: 20141002
  Serious: No
  Sender: FDA-Public Use
  Company Number: US-GLAXOSMITHKLINE-A1037200A

PATIENT
  Age: 62 Year
  Sex: Female

DRUGS (2)
  1. PROMACTA [Suspect]
     Indication: ESSENTIAL THROMBOCYTHAEMIA
     Dosage: 75MGD PER DAY
     Route: 048
     Dates: start: 20130605
  2. UNKNOWN [Concomitant]

REACTIONS (2)
  - Abdominal discomfort [Unknown]
  - Drug ineffective [Unknown]
